FAERS Safety Report 12321578 (Version 1)
Quarter: 2016Q2

REPORT INFORMATION
  Report Type: Spontaneous
  Country: US (occurrence: None)
  Receive Date: 20160429
  Receipt Date: 20160429
  Transmission Date: 20160815
  Serious: Yes (Other)
  Sender: FDA-Public Use
  Company Number: None

PATIENT
  Age: 28 Year
  Sex: Female
  Weight: 61.69 kg

DRUGS (2)
  1. LEUPROLIDE ACETATE, 1 MG SANDOZ [Suspect]
     Active Substance: LEUPROLIDE ACETATE
     Indication: OVARIAN DISORDER
     Dosage: 12 INJECTION(S) ONCE A DAY INJECTION SUBQ
     Route: 058
     Dates: start: 20160328, end: 20160411
  2. LEUPROLIDE ACETATE, 1 MG SANDOZ [Suspect]
     Active Substance: LEUPROLIDE ACETATE
     Indication: IN VITRO FERTILISATION
     Dosage: 12 INJECTION(S) ONCE A DAY INJECTION SUBQ
     Route: 058
     Dates: start: 20160328, end: 20160411

REACTIONS (2)
  - Carpal tunnel syndrome [None]
  - Impaired work ability [None]

NARRATIVE: CASE EVENT DATE: 20160411
